FAERS Safety Report 9663081 (Version 1)
Quarter: 2013Q4

REPORT INFORMATION
  Report Type: Spontaneous
  Country: AU (occurrence: AU)
  Receive Date: 20131031
  Receipt Date: 20131031
  Transmission Date: 20140711
  Serious: Yes (Hospitalization)
  Sender: FDA-Public Use
  Company Number: AU-AMGEN-AUSSP2013076916

PATIENT
  Sex: Female

DRUGS (3)
  1. ENBREL [Suspect]
     Indication: RHEUMATOID ARTHRITIS
     Dosage: UNK
     Route: 065
     Dates: start: 20130801
  2. METHOTREXATE [Concomitant]
     Dosage: UNK
     Dates: start: 2010
  3. SALAZOPYRIN [Concomitant]
     Dosage: UNK

REACTIONS (11)
  - Rash [Unknown]
  - Oedema peripheral [Unknown]
  - Pain in extremity [Unknown]
  - Malaise [Unknown]
  - Hypersensitivity [Unknown]
  - Pain [Unknown]
  - Swelling [Unknown]
  - Viral infection [Unknown]
  - Bacterial infection [Unknown]
  - Meningococcal infection [Unknown]
  - Vasculitis [Unknown]
